FAERS Safety Report 21707360 (Version 1)
Quarter: 2022Q4

REPORT INFORMATION
  Report Type: Spontaneous
  Country: CZ (occurrence: None)
  Receive Date: 20221209
  Receipt Date: 20221209
  Transmission Date: 20230113
  Serious: Yes (Life-Threatening, Hospitalization, Disabling, Other)
  Sender: FDA-Public Use
  Company Number: 2022A400904

PATIENT
  Age: 39 Year
  Sex: Female

DRUGS (2)
  1. DAPAGLIFLOZIN [Suspect]
     Active Substance: DAPAGLIFLOZIN
     Dosage: 1-0-0
     Route: 065
     Dates: start: 20220301, end: 20221022
  2. VALPROIC ACID [Concomitant]
     Active Substance: VALPROIC ACID
     Route: 048

REACTIONS (4)
  - Acidosis [Recovered/Resolved with Sequelae]
  - Ketoacidosis [Recovered/Resolved with Sequelae]
  - Somnolence [Unknown]
  - Drug ineffective [Unknown]
